FAERS Safety Report 9843898 (Version 1)
Quarter: 2013Q4

REPORT INFORMATION
  Report Type: Spontaneous
  Country: US (occurrence: None)
  Receive Date: 20131223
  Receipt Date: 20131223
  Transmission Date: 20140711
  Serious: No
  Sender: FDA-Public Use
  Company Number: 1000048919

PATIENT
  Age: 90 Year
  Sex: Male

DRUGS (2)
  1. LINZESS [Suspect]
     Indication: CONSTIPATION
     Dosage: 145 MCG (145 MCG, 1 IN 1 D), ORAL
     Route: 048
     Dates: start: 20130912
  2. ATENOLOL (ATENOLOL) (ATENOLOL) [Concomitant]

REACTIONS (2)
  - Drug ineffective [None]
  - Flatulence [None]
